FAERS Safety Report 11628540 (Version 1)
Quarter: 2015Q4

REPORT INFORMATION
  Report Type: Spontaneous
  Country: US (occurrence: None)
  Receive Date: 20151013
  Receipt Date: 20151013
  Transmission Date: 20160304
  Serious: No
  Sender: FDA-Public Use
  Company Number: None

PATIENT
  Age: 38 Year
  Sex: Female
  Weight: 62.6 kg

DRUGS (2)
  1. MULTI VITAMIN [Concomitant]
     Active Substance: VITAMINS
  2. LEVAQUIN [Suspect]
     Active Substance: LEVOFLOXACIN
     Indication: BRONCHITIS
     Route: 048
     Dates: start: 20150924, end: 20151010

REACTIONS (6)
  - Procedural site reaction [None]
  - Pain in extremity [None]
  - Bronchitis [None]
  - Arthralgia [None]
  - Joint swelling [None]
  - Tendon pain [None]

NARRATIVE: CASE EVENT DATE: 20150924
